FAERS Safety Report 22761882 (Version 2)
Quarter: 2023Q4

REPORT INFORMATION
  Report Type: Report from Study
  Country: JP (occurrence: JP)
  Receive Date: 20230728
  Receipt Date: 20231206
  Transmission Date: 20240109
  Serious: Yes (Death, Hospitalization, Other)
  Sender: FDA-Public Use
  Company Number: JP-TAKEDA-2023TJP003226

PATIENT

DRUGS (12)
  1. NIRAPARIB [Suspect]
     Active Substance: NIRAPARIB
     Indication: Bile duct cancer
     Dosage: 200 MILLIGRAM
     Route: 048
     Dates: start: 20221222, end: 20230305
  2. NIRAPARIB [Suspect]
     Active Substance: NIRAPARIB
     Dosage: 200 MILLIGRAM
     Route: 048
     Dates: start: 20230401, end: 20230413
  3. NIRAPARIB [Suspect]
     Active Substance: NIRAPARIB
     Dosage: 200 MILLIGRAM
     Route: 048
     Dates: start: 20230422, end: 20230502
  4. VONOPRAZAN FUMARATE [Concomitant]
     Active Substance: VONOPRAZAN FUMARATE
     Indication: Prophylaxis against gastrointestinal ulcer
     Dosage: 10 MG, QD(10 MILLIGRAM, QD)
     Route: 048
  5. REPAGLINIDE [Concomitant]
     Active Substance: REPAGLINIDE
     Indication: Diabetes mellitus
     Dosage: 0.25 MG, QD(0.25 MILLIGRAM, QD)
     Route: 048
  6. SODIUM CHLORIDE [Concomitant]
     Active Substance: SODIUM CHLORIDE
     Indication: Hyponatraemia
     Dosage: 2 G, TID(2 GRAM, TID)
     Route: 048
  7. DUTASTERIDE [Concomitant]
     Active Substance: DUTASTERIDE
     Indication: Benign prostatic hyperplasia
     Dosage: 0.5 MG, QD(0.5 MILLIGRAM, QD)
     Route: 048
  8. TADALAFIL [Concomitant]
     Active Substance: TADALAFIL
     Indication: Benign prostatic hyperplasia
     Dosage: 5 MG, QD(5 MILLIGRAM, QD)
     Route: 048
  9. HEPARIN CALCIUM [Concomitant]
     Active Substance: HEPARIN CALCIUM
     Indication: Thrombophlebitis migrans
     Dosage: 17500 IU(17500 INTERNATIONAL UNIT)
     Route: 058
  10. DIPHENHYDRAMINE [Concomitant]
     Active Substance: DIPHENHYDRAMINE
     Indication: Dry skin
     Dosage: UNK
     Route: 065
  11. HEPARINOID [Concomitant]
     Indication: Dry skin
     Dosage: UNK
     Route: 065
  12. HEPARINOID [Concomitant]
     Indication: Dry skin
     Dosage: UNK
     Route: 065

REACTIONS (4)
  - Bile duct cancer [Fatal]
  - Seizure [Recovered/Resolved]
  - Off label use [Unknown]
  - Jugular vein thrombosis [Unknown]

NARRATIVE: CASE EVENT DATE: 20221222
